FAERS Safety Report 9090579 (Version 2)
Quarter: 2013Q1

REPORT INFORMATION
  Report Type: Spontaneous
  Country: US (occurrence: US)
  Receive Date: 20130201
  Receipt Date: 20130321
  Transmission Date: 20140127
  Serious: Yes (Death, Hospitalization, Other)
  Sender: FDA-Public Use
  Company Number: US-PFIZER INC-2013040616

PATIENT
  Age: 73 Year
  Sex: Male

DRUGS (10)
  1. SUTENT [Suspect]
     Indication: NEOPLASM MALIGNANT
     Dosage: 12.5 MG, UNK
     Dates: start: 20130111
  2. CITALOPRAM HYDROBROMIDE [Concomitant]
     Dosage: UNK
  3. PANTOPRAZOLE SODIUM [Concomitant]
     Dosage: UNK
  4. COLACE [Concomitant]
     Dosage: UNK
  5. SENOKOT [Concomitant]
     Dosage: UNK
  6. ENSURE [Concomitant]
     Dosage: UNK
  7. WELLBUTRIN SR [Concomitant]
     Dosage: UNK
  8. METFORMIN HYDROCHLORIDE [Concomitant]
     Dosage: UNK
  9. MIDODRINE HYDROCHLORIDE [Concomitant]
     Dosage: UNK
  10. ONDANSETRON HYDROCHLORIDE [Concomitant]
     Dosage: UNK

REACTIONS (2)
  - Death [Fatal]
  - Tumour haemorrhage [Unknown]
